FAERS Safety Report 9731400 (Version 3)
Quarter: 2014Q2

REPORT INFORMATION
  Report Type: Spontaneous
  Country: JP (occurrence: JP)
  Receive Date: 20131203
  Receipt Date: 20140401
  Transmission Date: 20141212
  Serious: Yes (Death)
  Sender: FDA-Public Use
  Company Number: JP-OTSUKA-JP-2013-15678

PATIENT
  Age: 72 Year
  Sex: Male

DRUGS (13)
  1. SAMSCA [Suspect]
     Indication: ASCITES
     Dosage: 3.75 MG MILLIGRAM(S), DAILY DOSE
     Route: 048
     Dates: start: 20131001, end: 20131003
  2. SAMSCA [Suspect]
     Dosage: 7.5 MG MILLIGRAM(S), DAILY DOSE
     Route: 048
     Dates: start: 20131004, end: 20131012
  3. ALOSITOL [Concomitant]
     Dosage: 100 MG MILLIGRAM(S), QD
     Route: 048
     Dates: start: 20130527, end: 20131021
  4. CLARITIN [Concomitant]
     Dosage: 10 MG MILLIGRAM(S), QD
     Route: 048
     Dates: start: 20130527, end: 20131021
  5. NEUROVITAN [Concomitant]
     Dosage: 3 DF DOSAGE FORM, DAILY DOSE
     Route: 048
     Dates: start: 20130528, end: 20131021
  6. EPEL [Concomitant]
     Dosage: 100 MG MILLIGRAM(S), DAILY DOSE
     Route: 048
     Dates: start: 20130528, end: 20131021
  7. LANSOPRAZOLE [Concomitant]
     Dosage: 15 MG MILLIGRAM(S), QD
     Route: 048
     Dates: start: 20130528, end: 20131025
  8. MONILAC [Concomitant]
     Dosage: 30 ML MILLILITRE(S), DAILY DOSE
     Route: 048
     Dates: start: 20130704, end: 20131025
  9. AMINOLEBAN EN [Concomitant]
     Dosage: 150 G GRAM(S), DAILY DOSE
     Route: 048
     Dates: start: 20130718, end: 20131025
  10. LASIX [Concomitant]
     Dosage: 80 MG MILLIGRAM(S), DAILY DOSE
     Route: 042
     Dates: start: 20130906, end: 20131016
  11. VENECTOMIN [Concomitant]
     Dosage: 200 MG MILLIGRAM(S), DAILY DOSE
     Route: 042
     Dates: start: 20130916, end: 20131014
  12. SHAKUYAKUKANZOUTOU [Concomitant]
     Dosage: 7.5 G GRAM(S), DAILY DOSE
     Route: 048
     Dates: end: 20131021
  13. URSO [Concomitant]
     Dosage: 600 MG MILLIGRAM(S), DAILY DOSE
     Route: 048
     Dates: end: 20131025

REACTIONS (2)
  - Blood creatinine increased [Fatal]
  - Renal failure acute [Fatal]
